FAERS Safety Report 4566515-0 (Version None)
Quarter: 2005Q1

REPORT INFORMATION
  Report Type: 
  Country: None (occurrence: None)
  Receive Date: 20050128
  Receipt Date: 20050121
  Transmission Date: 20050727
  Serious: Yes (Life-Threatening, Hospitalization)
  Sender: FDA-Public Use
  Company Number: 05USA0025

PATIENT
  Sex: Female

DRUGS (5)
  1. AGGRASTAT [Suspect]
     Indication: ACUTE CORONARY SYNDROME
  2. CLOPIDOGREL BISULFATE [Concomitant]
  3. ASPIRIN [Concomitant]
  4. HEPARIN [Concomitant]
  5. OTHER (OTHER ANALGESICS AND ANTIPYRETICS) [Concomitant]

REACTIONS (2)
  - CATHETER SITE RELATED REACTION [None]
  - EXTRADURAL HAEMATOMA [None]
